FAERS Safety Report 5777376-6 (Version None)
Quarter: 2008Q2

REPORT INFORMATION
  Report Type: 
  Country: None (occurrence: None)
  Receive Date: 20080618
  Receipt Date: 20080610
  Transmission Date: 20081010
  Serious: Yes (Death)
  Sender: FDA-Public Use
  Company Number: US-JNJFOC-20080601963

PATIENT
  Age: 68 Year
  Sex: Male

DRUGS (3)
  1. INVEGA [Suspect]
     Route: 048
  2. INVEGA [Suspect]
     Indication: BIPOLAR DISORDER
     Route: 048
  3. ANITIHISTAMINE NOS [Concomitant]
     Indication: INSOMNIA

REACTIONS (2)
  - AGITATION [None]
  - COMPLETED SUICIDE [None]
